FAERS Safety Report 16891154 (Version 1)
Quarter: 2019Q4

REPORT INFORMATION
  Report Type: Spontaneous
  Country: US (occurrence: US)
  Receive Date: 20191006
  Receipt Date: 20191006
  Transmission Date: 20200122
  Serious: Yes (Disabling)
  Sender: FDA-Public Use
  Company Number: None

PATIENT
  Age: 34 Year
  Sex: Female
  Weight: 103.5 kg

DRUGS (17)
  1. ATORVASTATIN [Concomitant]
     Active Substance: ATORVASTATIN
  2. VITAMIN D3 [Concomitant]
     Active Substance: CHOLECALCIFEROL
  3. PROBIOTIC [Concomitant]
     Active Substance: PROBIOTICS NOS
  4. TURMERIC [Concomitant]
     Active Substance: HERBALS\TURMERIC
  5. BACLOFEN. [Concomitant]
     Active Substance: BACLOFEN
  6. BUPROPION. [Concomitant]
     Active Substance: BUPROPION
  7. SUDAFED [Concomitant]
     Active Substance: PSEUDOEPHEDRINE HYDROCHLORIDE
  8. PRILOSEC [Concomitant]
     Active Substance: OMEPRAZOLE MAGNESIUM
  9. BENEFIBER [Concomitant]
     Active Substance: STARCH, WHEAT
  10. GABAPENTIN. [Concomitant]
     Active Substance: GABAPENTIN
  11. ZYRTEC [Concomitant]
     Active Substance: CETIRIZINE HYDROCHLORIDE
  12. CENTRUM WOMEN^S MULTI VITAMIN [Concomitant]
  13. GLATOPA [Suspect]
     Active Substance: GLATIRAMER ACETATE
     Indication: MULTIPLE SCLEROSIS
     Dosage: ?          QUANTITY:1 INJECTION(S);OTHER FREQUENCY:3 TIMES A WEEK;?
     Route: 058
     Dates: start: 20190527
  14. CINNAMON. [Concomitant]
     Active Substance: CINNAMON
  15. OMEGA 3 [Concomitant]
     Active Substance: OMEGA-3 FATTY ACIDS
  16. BOTOX [Concomitant]
     Active Substance: ONABOTULINUMTOXINA
  17. LP SHUNT [Concomitant]

REACTIONS (1)
  - Cough [None]

NARRATIVE: CASE EVENT DATE: 20190701
